FAERS Safety Report 19738995 (Version 4)
Quarter: 2022Q4

REPORT INFORMATION
  Report Type: Report from Study
  Country: KR (occurrence: KR)
  Receive Date: 20210824
  Receipt Date: 20221017
  Transmission Date: 20230112
  Serious: Yes (Hospitalization, Other)
  Sender: FDA-Public Use
  Company Number: KR-TAKEDA-2021TUS052469

PATIENT
  Age: 24 Year
  Sex: Female
  Weight: 55 kg

DRUGS (16)
  1. VEDOLIZUMAB [Suspect]
     Active Substance: VEDOLIZUMAB
     Indication: Colitis ulcerative
     Dosage: 300 MILLIGRAM
     Route: 042
     Dates: start: 20210611, end: 20210611
  2. VEDOLIZUMAB [Suspect]
     Active Substance: VEDOLIZUMAB
     Dosage: 300 MILLIGRAM
     Route: 042
     Dates: start: 20210624, end: 20210624
  3. VEDOLIZUMAB [Suspect]
     Active Substance: VEDOLIZUMAB
     Dosage: 300 MILLIGRAM
     Route: 042
     Dates: start: 20220722
  4. PROAMIN [Concomitant]
     Indication: Hypoproteinaemia
     Dosage: 500 MILLILITER
     Route: 042
     Dates: start: 20210611, end: 20210611
  5. DICAMAX [Concomitant]
     Indication: Anaemia prophylaxis
     Dosage: UNK UNK, QD
     Route: 048
     Dates: start: 20210702
  6. DEXILANT [Concomitant]
     Active Substance: DEXLANSOPRAZOLE
     Indication: Dyspepsia
     Dosage: UNK UNK, QD
     Route: 048
     Dates: start: 20210702
  7. ARONAMIN C PLUS [Concomitant]
     Indication: Vitamin supplementation
     Dosage: UNK UNK, QD
     Route: 048
     Dates: start: 20210702
  8. PERIOLIMEL N4E [Concomitant]
     Indication: Nutritional supplementation
     Dosage: 1000 MILLILITER
     Route: 042
     Dates: start: 20210702
  9. Citopcin [Concomitant]
     Indication: Adverse event
     Dosage: 200 MILLILITER, BID
     Route: 042
     Dates: start: 20210730, end: 20210803
  10. Citopcin [Concomitant]
     Dosage: UNK UNK, BID
     Route: 048
     Dates: start: 20210722, end: 20210722
  11. Disolrin [Concomitant]
     Indication: Adverse event
     Dosage: 40 MILLIGRAM, QD
     Route: 042
     Dates: start: 20210730, end: 20210804
  12. INFLIXIMAB [Concomitant]
     Active Substance: INFLIXIMAB
     Indication: Adverse event
     Dosage: 300 MILLIGRAM
     Route: 042
     Dates: start: 20210803
  13. PENTASA [Concomitant]
     Active Substance: MESALAMINE
     Dosage: UNK UNK, QD
     Route: 048
     Dates: start: 20210702
  14. METHYLPREDNISOLONE [Concomitant]
     Active Substance: METHYLPREDNISOLONE
     Dosage: UNK UNK, QD
     Route: 048
     Dates: start: 20210702
  15. LOPAINE [Concomitant]
     Dosage: UNK UNK, TID
     Route: 048
     Dates: start: 20210624, end: 20210701
  16. FLASINYL [Concomitant]
     Dosage: UNK UNK, BID
     Route: 048
     Dates: start: 20210722

REACTIONS (1)
  - Colitis ulcerative [Recovered/Resolved]

NARRATIVE: CASE EVENT DATE: 20210730
